FAERS Safety Report 17618657 (Version 4)
Quarter: 2021Q2

REPORT INFORMATION
  Report Type: Spontaneous
  Country: IT (occurrence: IT)
  Receive Date: 20200402
  Receipt Date: 20210530
  Transmission Date: 20210716
  Serious: Yes (Death, Other)
  Sender: FDA-Public Use
  Company Number: IT-CELLTRION INC.-2020IT021132

PATIENT

DRUGS (3)
  1. BENDAMUSTINE [Suspect]
     Active Substance: BENDAMUSTINE
     Indication: FOLLICULAR LYMPHOMA
     Dosage: UNK,UNK,CYCLIC POWDER (EXCEPT DUSTING) 6 SIX CYCLES OF BR CHEMOTHERAPY
     Route: 042
  2. RITUXIMAB (UNKNOWN) [Suspect]
     Active Substance: RITUXIMAB
     Indication: FOLLICULAR LYMPHOMA
     Dosage: UNK UNK, CYCLIC, 12 CYCLES
     Route: 065
  3. RITUXIMAB (UNKNOWN) [Suspect]
     Active Substance: RITUXIMAB
     Dosage: TREATED WITH RITUXIMAB MAINTENANCE FOLLOWING SIX CYCLES OF BR INDUCTION CHEMOTHERAPY
     Route: 065

REACTIONS (8)
  - Agnosia [Fatal]
  - Dyslexia [Fatal]
  - Visual impairment [Fatal]
  - JC virus infection [Fatal]
  - Product use issue [Fatal]
  - Poor personal hygiene [Fatal]
  - Progressive multifocal leukoencephalopathy [Fatal]
  - Disorganised speech [Fatal]
